FAERS Safety Report 4887094-4 (Version None)
Quarter: 2006Q1

REPORT INFORMATION
  Report Type: 
  Country: None (occurrence: None)
  Receive Date: 20060120
  Receipt Date: 20050421
  Transmission Date: 20060701
  Serious: Yes (Disabling, Other)
  Sender: FDA-Public Use
  Company Number: US-MERCK-0504USA04282

PATIENT
  Age: 35 Year
  Sex: Female
  Weight: 91 kg

DRUGS (1)
  1. VIOXX [Suspect]
     Indication: MIGRAINE
     Route: 048
     Dates: start: 20040501, end: 20040901

REACTIONS (6)
  - BENIGN INTRACRANIAL HYPERTENSION [None]
  - CEREBROVASCULAR ACCIDENT [None]
  - INJURY [None]
  - NEURITIS [None]
  - PAPILLOEDEMA [None]
  - PRESCRIBED OVERDOSE [None]
